FAERS Safety Report 8986833 (Version 1)
Quarter: 2012Q4

REPORT INFORMATION
  Report Type: 
  Country: DZ (occurrence: DZ)
  Receive Date: 20121226
  Receipt Date: 20121226
  Transmission Date: 20130627
  Serious: Yes (Disabling, Other)
  Sender: FDA-Public Use
  Company Number: DZ-ROCHE-1173328

PATIENT
  Age: 56 Year
  Sex: Female

DRUGS (3)
  1. AVASTIN [Suspect]
     Indication: METASTATIC NEOPLASM
     Route: 042
  2. CARBOPLATIN [Suspect]
     Indication: METASTATIC NEOPLASM
     Route: 042
  3. PEMETREXED [Suspect]
     Indication: METASTATIC NEOPLASM
     Route: 042

REACTIONS (2)
  - Blindness [Not Recovered/Not Resolved]
  - Ischaemic stroke [Recovering/Resolving]
